FAERS Safety Report 6879949-6 (Version None)
Quarter: 2010Q3

REPORT INFORMATION
  Report Type: 
  Country: None (occurrence: None)
  Receive Date: 20100728
  Receipt Date: 20100707
  Transmission Date: 20110219
  Serious: Yes (Hospitalization)
  Sender: FDA-Public Use
  Company Number: CN-BRISTOL-MYERS SQUIBB COMPANY-14669931

PATIENT
  Age: 38 Year
  Sex: Female

DRUGS (3)
  1. ABILIFY [Suspect]
     Indication: BIPOLAR DISORDER
     Route: 048
     Dates: start: 20090603, end: 20090612
  2. OLANZAPINE [Concomitant]
     Dates: start: 20090527, end: 20090601
  3. LITHIUM [Concomitant]
     Dates: start: 20090527, end: 20090530

REACTIONS (1)
  - MANIA [None]
